FAERS Safety Report 15808724 (Version 1)
Quarter: 2019Q1

REPORT INFORMATION
  Report Type: Spontaneous
  Country: DE (occurrence: DE)
  Receive Date: 20190110
  Receipt Date: 20190110
  Transmission Date: 20190417
  Serious: Yes (Life-Threatening)
  Sender: FDA-Public Use
  Company Number: DE-BIOCODEX SA-201801515

PATIENT
  Sex: Male
  Weight: 6.9 kg

DRUGS (4)
  1. VALPROATE [Suspect]
     Active Substance: VALPROIC ACID
     Indication: EPILEPTIC ENCEPHALOPATHY
     Dosage: 360 MG, QD
     Route: 048
     Dates: start: 20171003, end: 20180303
  2. POTASSIUM BROMIDE [Concomitant]
     Active Substance: POTASSIUM BROMIDE
     Indication: PRODUCT USED FOR UNKNOWN INDICATION
  3. CLOBAZAM. [Suspect]
     Active Substance: CLOBAZAM
     Indication: EPILEPTIC ENCEPHALOPATHY
     Dosage: 3 MG, UNK
     Route: 048
     Dates: start: 20170903
  4. DIACOMIT [Suspect]
     Active Substance: STIRIPENTOL
     Indication: EPILEPTIC ENCEPHALOPATHY
     Dosage: 350 MG, QD
     Route: 048
     Dates: start: 20180114, end: 20180303

REACTIONS (3)
  - Liver function test increased [Recovered/Resolved]
  - Liver disorder [Recovered/Resolved]
  - Disturbance in attention [Recovered/Resolved]
